FAERS Safety Report 4315515-4 (Version None)
Quarter: 2004Q1

REPORT INFORMATION
  Report Type: 
  Country: None (occurrence: None)
  Receive Date: 20040311
  Receipt Date: 20031031
  Transmission Date: 20041129
  Serious: Yes (Hospitalization, Disabling)
  Sender: FDA-Public Use
  Company Number: WAES 0310USA03464

PATIENT
  Age: 57 Year
  Sex: Female
  Weight: 61 kg

DRUGS (10)
  1. DARVOCET-N 100 [Concomitant]
  2. FOSAMAX [Concomitant]
     Route: 048
  3. CLEOCIN [Concomitant]
  4. CYANOCOBALAMIN [Concomitant]
  5. PREMARIN [Concomitant]
  6. CYTOMEL [Concomitant]
  7. CREON [Concomitant]
  8. POTASSIUM (UNSPECIFIED) [Concomitant]
  9. VIOXX [Suspect]
     Indication: ARTHRITIS
     Route: 048
     Dates: start: 19990101, end: 20011102
  10. VITAMIN D (UNSPECIFIED) [Concomitant]

REACTIONS (9)
  - ACUTE SINUSITIS [None]
  - CEREBROVASCULAR ACCIDENT [None]
  - CORONARY ARTERY DISEASE [None]
  - FAECAL INCONTINENCE [None]
  - MALABSORPTION [None]
  - STRESS SYMPTOMS [None]
  - TRANSIENT ISCHAEMIC ATTACK [None]
  - URINARY TRACT INFECTION [None]
  - VERTIGO [None]
